FAERS Safety Report 5581445-3 (Version None)
Quarter: 2007Q4

REPORT INFORMATION
  Report Type: 
  Country: None (occurrence: None)
  Receive Date: 20071231
  Receipt Date: 20071231
  Transmission Date: 20080405
  Serious: Yes (Other)
  Sender: FDA-Public Use
  Company Number: None

PATIENT
  Sex: Female
  Weight: 136.0791 kg

DRUGS (1)
  1. CLINDMYCIN 150 MG CAPSULES TEVA USA [Suspect]
     Indication: TOOTH ABSCESS
     Dosage: 2 INITIALLY THEN 1 CAPSULE   3 TIMES A DAY  PO
     Route: 048
     Dates: start: 20071220, end: 20071220

REACTIONS (7)
  - AGEUSIA [None]
  - BLISTER [None]
  - BURNING SENSATION [None]
  - ORAL MUCOSAL BLISTERING [None]
  - RASH GENERALISED [None]
  - SKIN DISORDER [None]
  - SKIN EXFOLIATION [None]
